FAERS Safety Report 5815932-7 (Version None)
Quarter: 2008Q3

REPORT INFORMATION
  Report Type: 
  Country: None (occurrence: None)
  Receive Date: 20080716
  Receipt Date: 20080716
  Transmission Date: 20090109
  Serious: Yes (Disabling, Other)
  Sender: FDA-Public Use
  Company Number: None

PATIENT
  Age: 55 Year
  Sex: Female
  Weight: 149.687 kg

DRUGS (4)
  1. LEVAQUIN [Suspect]
     Indication: ANTIBIOTIC PROPHYLAXIS
     Dates: start: 20070407, end: 20070417
  2. LEVAQUIN [Suspect]
     Indication: LIMB INJURY
     Dates: start: 20070407, end: 20070417
  3. LEVAQUIN [Suspect]
     Indication: SUTURE INSERTION
     Dates: start: 20070407, end: 20070417
  4. CIPRO [Concomitant]

REACTIONS (2)
  - ORTHOSIS USER [None]
  - TENDONITIS [None]
